FAERS Safety Report 23302754 (Version 1)
Quarter: 2023Q4

REPORT INFORMATION
  Report Type: Spontaneous
  Country: CN (occurrence: CN)
  Receive Date: 20231215
  Receipt Date: 20231215
  Transmission Date: 20240110
  Serious: Yes (Hospitalization, Other)
  Sender: FDA-Public Use
  Company Number: CN-PFIZER INC-PV202300201403

PATIENT
  Age: 61 Year
  Sex: Female
  Weight: 50 kg

DRUGS (1)
  1. MEDROL [Suspect]
     Active Substance: METHYLPREDNISOLONE
     Indication: Rheumatoid arthritis
     Dosage: 8 MG, 1X/DAY
     Route: 048
     Dates: start: 20111130, end: 20231127

REACTIONS (3)
  - Pneumonia [Unknown]
  - Vitamin D deficiency [Unknown]
  - Osteocalcin decreased [Unknown]

NARRATIVE: CASE EVENT DATE: 20231201
